FAERS Safety Report 7350979-3 (Version None)
Quarter: 2011Q1

REPORT INFORMATION
  Report Type: 
  Country: None (occurrence: None)
  Receive Date: 20110314
  Receipt Date: 20110307
  Transmission Date: 20110831
  Serious: Yes (Other)
  Sender: FDA-Public Use
  Company Number: US-PFIZER INC-2011049999

PATIENT
  Sex: Female
  Weight: 77.098 kg

DRUGS (1)
  1. XALATAN [Suspect]
     Indication: GLAUCOMA
     Dosage: 2 GTT, UNK

REACTIONS (14)
  - CATARACT OPERATION [None]
  - RENAL PAIN [None]
  - EYE PRURITUS [None]
  - ARTHRITIS [None]
  - EYE DISORDER [None]
  - NAUSEA [None]
  - WEIGHT INCREASED [None]
  - DRY EYE [None]
  - HEART RATE IRREGULAR [None]
  - RENAL CYST [None]
  - DYSPNOEA [None]
  - BLOOD GLUCOSE ABNORMAL [None]
  - GLAUCOMA [None]
  - PAINFUL RESPIRATION [None]
